FAERS Safety Report 5869394-4 (Version None)
Quarter: 2008Q3

REPORT INFORMATION
  Report Type: 
  Country: None (occurrence: None)
  Receive Date: 20080903
  Receipt Date: 20080902
  Transmission Date: 20090109
  Serious: Yes (Death)
  Sender: FDA-Public Use
  Company Number: AU-BOEHRINGER INGELHEIM GMBH, GERMANY-2008-BP-13621AU

PATIENT
  Age: 70 Year
  Sex: Male

DRUGS (2)
  1. MICARDIS HCT [Suspect]
     Indication: BLOOD PRESSURE
     Dosage: 80/12.5 MG
     Route: 048
     Dates: start: 20080101
  2. ACTOS [Concomitant]

REACTIONS (1)
  - INFARCTION [None]
